FAERS Safety Report 4822738-4 (Version None)
Quarter: 2005Q4

REPORT INFORMATION
  Report Type: 
  Country: None (occurrence: None)
  Receive Date: 20051108
  Receipt Date: 20051101
  Transmission Date: 20060501
  Serious: Yes (Life-Threatening, Hospitalization)
  Sender: FDA-Public Use
  Company Number: 2005PK02056

PATIENT
  Age: 3 Day
  Sex: Female
  Weight: 2.8 kg

DRUGS (2)
  1. BELOC ZOK MITE [Suspect]
     Route: 064
     Dates: end: 20050822
  2. METAMIZOL [Suspect]
     Dosage: 1-2.5 G
     Route: 063
     Dates: start: 20050823

REACTIONS (8)
  - ATRIAL SEPTAL DEFECT [None]
  - BRADYCARDIA NEONATAL [None]
  - CAESAREAN SECTION [None]
  - CYANOSIS [None]
  - DRUG EXPOSURE DURING PREGNANCY [None]
  - INFANTILE APNOEIC ATTACK [None]
  - NEONATAL DISORDER [None]
  - OXYGEN SATURATION DECREASED [None]
